FAERS Safety Report 6099248-2 (Version None)
Quarter: 2009Q1

REPORT INFORMATION
  Report Type: 
  Country: None (occurrence: None)
  Receive Date: 20090303
  Receipt Date: 20090225
  Transmission Date: 20090719
  Serious: No
  Sender: FDA-Public Use
  Company Number: US-JNJFOC-20090206482

PATIENT
  Sex: Female
  Weight: 54.43 kg

DRUGS (4)
  1. FENTANYL TRANSDERMAL SYSTEM [Suspect]
     Indication: BACK PAIN
     Route: 062
  2. PERCOCET [Concomitant]
     Indication: PAIN
     Dosage: AS NEEDED
     Route: 048
  3. LEVOXYL [Concomitant]
     Indication: THYROID DISORDER
     Route: 048
  4. ESTROGENIC SUBSTANCE [Concomitant]
     Indication: HYSTERECTOMY
     Route: 062

REACTIONS (2)
  - DRUG DOSE OMISSION [None]
  - PAIN [None]
